FAERS Safety Report 7350506-0 (Version None)
Quarter: 2011Q1

REPORT INFORMATION
  Report Type: 
  Country: None (occurrence: None)
  Receive Date: 20110314
  Receipt Date: 20110309
  Transmission Date: 20110831
  Serious: Yes (Hospitalization)
  Sender: FDA-Public Use
  Company Number: IT-PFIZER INC-2011052640

PATIENT
  Age: 63 Year
  Sex: Male

DRUGS (4)
  1. HYDROCHLOROTHIAZIDE/OLMESARTAN MEDOXOMIL [Concomitant]
     Dosage: UNK
     Dates: start: 20100318, end: 20110224
  2. BENTELAN [Concomitant]
     Dosage: UNK
     Dates: start: 20101122, end: 20110224
  3. ZITHROMAX [Suspect]
     Dosage: UNK
     Route: 065
     Dates: start: 20110225, end: 20110225
  4. LAROXYL [Concomitant]
     Dosage: UNK
     Dates: start: 20100610, end: 20110224

REACTIONS (2)
  - RASH [None]
  - HYPERAEMIA [None]
